FAERS Safety Report 17478135 (Version 2)
Quarter: 2020Q3

REPORT INFORMATION
  Report Type: Report from Study
  Country: US (occurrence: US)
  Receive Date: 20200228
  Receipt Date: 20200706
  Transmission Date: 20201102
  Serious: No
  Sender: FDA-Public Use
  Company Number: US-SA-2020SA047524

PATIENT

DRUGS (4)
  1. VITAMIN D NOS [Concomitant]
     Active Substance: VITAMIN D NOS
  2. TERIFLUNOMIDE. [Suspect]
     Active Substance: TERIFLUNOMIDE
     Indication: MULTIPLE SCLEROSIS
     Dosage: 7 MG, QD
     Route: 048
     Dates: start: 20200115
  3. INDERAL [Concomitant]
     Active Substance: PROPRANOLOL HYDROCHLORIDE
  4. KEPPRA [Concomitant]
     Active Substance: LEVETIRACETAM
     Dosage: UNK

REACTIONS (3)
  - Hypoacusis [Unknown]
  - Blood pressure fluctuation [Unknown]
  - Headache [Unknown]

NARRATIVE: CASE EVENT DATE: 2020
